FAERS Safety Report 14556839 (Version 2)
Quarter: 2018Q2

REPORT INFORMATION
  Report Type: Spontaneous
  Country: US (occurrence: US)
  Receive Date: 20180221
  Receipt Date: 20180422
  Transmission Date: 20180711
  Serious: No
  Sender: FDA-Public Use
  Company Number: US-APOTEX-2017AP019410

PATIENT
  Age: 27 Year
  Sex: Female

DRUGS (12)
  1. MEROPENEM. [Suspect]
     Active Substance: MEROPENEM
     Indication: KLEBSIELLA INFECTION
     Dosage: 2 G,
     Route: 042
  2. MEROPENEM. [Suspect]
     Active Substance: MEROPENEM
     Indication: URINARY TRACT INFECTION
  3. CEPHALEXIN                         /00145501/ [Suspect]
     Active Substance: CEPHALEXIN
     Indication: URINARY TRACT INFECTION
     Dosage: UNK
     Route: 065
  4. CEFEPIME [Suspect]
     Active Substance: CEFEPIME HYDROCHLORIDE
     Dosage: 6 G, 24 HOURS
     Route: 042
  5. CEFEPIME [Suspect]
     Active Substance: CEFEPIME HYDROCHLORIDE
     Dosage: 2 G, TID
     Route: 042
  6. FOSFOMYCIN [Suspect]
     Active Substance: FOSFOMYCIN
     Indication: URINARY TRACT INFECTION
     Dosage: 3 G, 1 DOSE EVERY 72 HOURS
     Route: 048
  7. FOSFOMYCIN [Suspect]
     Active Substance: FOSFOMYCIN
     Indication: KLEBSIELLA INFECTION
  8. FOSFOMYCIN [Suspect]
     Active Substance: FOSFOMYCIN
     Indication: PYELONEPHRITIS
  9. CEFEPIME [Suspect]
     Active Substance: CEFEPIME HYDROCHLORIDE
     Dosage: 2 G, TID
     Route: 042
  10. CEFTRIAXONE SODIUM. [Suspect]
     Active Substance: CEFTRIAXONE SODIUM
     Indication: URINARY TRACT INFECTION
     Dosage: 2 G, EVERY 24 HOUR FOR 3 DAYS
     Route: 042
  11. CEFEPIME [Suspect]
     Active Substance: CEFEPIME HYDROCHLORIDE
     Indication: URINARY TRACT INFECTION
     Dosage: 6 G, 24 HOURS
     Route: 042
  12. MEROPENEM. [Suspect]
     Active Substance: MEROPENEM
     Indication: PYELONEPHRITIS
     Dosage: 2 G, TID, OVER 3 HOUR EVERY 8 HOUR
     Route: 064

REACTIONS (1)
  - Exposure during pregnancy [Unknown]
